FAERS Safety Report 11267497 (Version 2)
Quarter: 2015Q3

REPORT INFORMATION
  Report Type: Spontaneous
  Country: IT (occurrence: IT)
  Receive Date: 20150713
  Receipt Date: 20150723
  Transmission Date: 20151125
  Serious: Yes (Death, Other)
  Sender: FDA-Public Use
  Company Number: IT-BAXALTA-2015BLT000289

PATIENT
  Age: 44 Year
  Sex: Male

DRUGS (1)
  1. PROTHROMBIN COMPLEX CONCENTRATE NOS [Suspect]
     Active Substance: COAGULATION FACTOR IX HUMAN\COAGULATION FACTOR VII HUMAN\COAGULATION FACTOR X HUMAN\PROTHROMBIN
     Indication: COAGULOPATHY
     Dosage: ADMINISTERED ^SEVERAL TIMES^
     Route: 065
     Dates: start: 1985, end: 1985

REACTIONS (15)
  - Portal vein thrombosis [Unknown]
  - Hepatic cancer [Unknown]
  - Ascites [Unknown]
  - Cholangitis [Unknown]
  - Hepatic arteriovenous malformation [Unknown]
  - Portal hypertension [Unknown]
  - Peritoneal haemorrhage [Fatal]
  - Hepatic cirrhosis [Fatal]
  - Splenomegaly [Unknown]
  - Transmission of an infectious agent via product [Unknown]
  - Varices oesophageal [Unknown]
  - Thrombocytopenia [Unknown]
  - Haemolytic anaemia [Unknown]
  - Hepatitis C [Unknown]
  - Immune thrombocytopenic purpura [Unknown]

NARRATIVE: CASE EVENT DATE: 1985
